FAERS Safety Report 8951221 (Version 2)
Quarter: 2012Q4

REPORT INFORMATION
  Report Type: Report from Study
  Country: BR (occurrence: BR)
  Receive Date: 20121207
  Receipt Date: 20121221
  Transmission Date: 20130627
  Serious: Yes (Hospitalization)
  Sender: FDA-Public Use
  Company Number: BR-NOVOPROD-365097

PATIENT
  Age: 72 Year
  Sex: Male
  Weight: 67.8 kg

DRUGS (2)
  1. LIRAGLUTIDE FLEXPEN [Suspect]
     Indication: TYPE 2 DIABETES MELLITUS
     Dosage: 1.2 mg, qd
     Dates: start: 20111205, end: 20120730
  2. LIRAGLUTIDE FLEXPEN [Suspect]
     Dosage: 1.2 mg, qd
     Route: 058
     Dates: start: 20120809

REACTIONS (1)
  - Pneumonia [Recovered/Resolved]
